FAERS Safety Report 5751541-6 (Version None)
Quarter: 2008Q2

REPORT INFORMATION
  Report Type: 
  Country: None (occurrence: None)
  Receive Date: 20080528
  Receipt Date: 20080516
  Transmission Date: 20081010
  Serious: Yes (Hospitalization, Other)
  Sender: FDA-Public Use
  Company Number: PHFR2008GB01054

PATIENT
  Sex: Male

DRUGS (7)
  1. CLOZARIL [Suspect]
     Indication: SCHIZOPHRENIA
     Dosage: 400MG DAILY
     Route: 048
     Dates: start: 20080219
  2. LITHIUM CARBONATE [Concomitant]
     Indication: AFFECTIVE DISORDER
     Dosage: 600MG DAILY
     Route: 048
  3. SIMVASTATIN [Concomitant]
     Dosage: 20MG DAILY
     Route: 048
  4. SIMVASTATIN [Concomitant]
     Dosage: 20MG DAILY
     Route: 048
  5. METFORMIN HCL [Concomitant]
     Dosage: 500 MG, BID
     Route: 048
  6. ACETYLSALICYLIC ACID SRT [Concomitant]
     Dosage: 75 MG, QD
     Route: 048
  7. HYOSCINE [Concomitant]
     Dosage: 300 UG, BID
     Route: 048

REACTIONS (9)
  - BALANCE DISORDER [None]
  - BLOOD PRESSURE DECREASED [None]
  - COLD SWEAT [None]
  - HEART RATE DECREASED [None]
  - HYPOVENTILATION [None]
  - LOSS OF CONSCIOUSNESS [None]
  - MALAISE [None]
  - UNRESPONSIVE TO STIMULI [None]
  - URINARY TRACT INFECTION [None]
